FAERS Safety Report 6877562-8 (Version None)
Quarter: 2010Q3

REPORT INFORMATION
  Report Type: 
  Country: None (occurrence: None)
  Receive Date: 20100727
  Receipt Date: 20100225
  Transmission Date: 20110219
  Serious: Yes (Other)
  Sender: FDA-Public Use
  Company Number: US-ABBOTT-10P-163-0629032-00

PATIENT
  Sex: Female
  Weight: 52.21 kg

DRUGS (6)
  1. SYNTHROID [Suspect]
     Indication: HYPOTHYROIDISM
     Dates: start: 20060201
  2. DILANTIN [Suspect]
     Indication: GRAND MAL CONVULSION
  3. DILANTIN [Suspect]
     Indication: COMPLEX PARTIAL SEIZURES
  4. DILANTIN [Suspect]
     Indication: STATUS EPILEPTICUS
  5. ASPIRIN [Concomitant]
     Indication: CEREBROVASCULAR ACCIDENT PROPHYLAXIS
  6. ATIVAN [Concomitant]
     Indication: CONVULSION PROPHYLAXIS

REACTIONS (4)
  - CONVULSION [None]
  - HYPERHIDROSIS [None]
  - ILL-DEFINED DISORDER [None]
  - RASH [None]
